FAERS Safety Report 10496288 (Version 1)
Quarter: 2014Q4

REPORT INFORMATION
  Report Type: Spontaneous
  Country: AU (occurrence: AU)
  Receive Date: 20141003
  Receipt Date: 20141003
  Transmission Date: 20150528
  Serious: Yes (Other)
  Sender: FDA-Public Use
  Company Number: PHHY2014AU122519

PATIENT
  Sex: Male

DRUGS (1)
  1. RITALIN [Suspect]
     Active Substance: METHYLPHENIDATE HYDROCHLORIDE
     Dosage: 10 MG, UNK (TOTAL 03 DOSES)
     Dates: start: 20140908

REACTIONS (7)
  - Cough [Recovering/Resolving]
  - Wheezing [Recovering/Resolving]
  - Abdominal distension [Recovering/Resolving]
  - Diarrhoea [Recovering/Resolving]
  - Anaphylactic reaction [Recovering/Resolving]
  - Urticaria [Recovering/Resolving]
  - Asthma [Recovering/Resolving]
